FAERS Safety Report 7625635-4 (Version None)
Quarter: 2011Q3

REPORT INFORMATION
  Report Type: 
  Country: None (occurrence: None)
  Receive Date: 20110713
  Receipt Date: 20110628
  Transmission Date: 20111222
  Serious: Yes (Hospitalization)
  Sender: FDA-Public Use
  Company Number: 2011MA007765

PATIENT
  Age: 71 Year
  Sex: Male
  Weight: 84 kg

DRUGS (4)
  1. RIFAMPIN [Suspect]
     Indication: TUBERCULOSIS
     Dosage: 600 MG, QD
  2. ETHAMBUTOL HYDROCHLORIDE [Suspect]
     Indication: TUBERCULOSIS
     Dosage: 400 MG, TID
     Route: 062
  3. BISOPROLOL FUMARATE [Concomitant]
  4. ISONIAZID [Suspect]
     Indication: TUBERCULOSIS
     Dosage: 300 MG

REACTIONS (8)
  - GAIT DISTURBANCE [None]
  - HYPERTENSION [None]
  - ARRHYTHMIA [None]
  - VENTRICULAR EXTRASYSTOLES [None]
  - PYREXIA [None]
  - TUBERCULOSIS BLADDER [None]
  - LOSS OF CONSCIOUSNESS [None]
  - SYNCOPE [None]
